FAERS Safety Report 6502045-4 (Version None)
Quarter: 2009Q4

REPORT INFORMATION
  Report Type: 
  Country: None (occurrence: None)
  Receive Date: 20091214
  Receipt Date: 20091117
  Transmission Date: 20100525
  Serious: Yes (Hospitalization)
  Sender: FDA-Public Use
  Company Number: DSA_42126_2009

PATIENT
  Sex: Male

DRUGS (13)
  1. DILTIAZEM HCL [Suspect]
     Indication: PRINZMETAL ANGINA
     Dosage: 100 MG QD, ORAL (200 MG 1X ORAL)
     Route: 048
     Dates: start: 20091110, end: 20091110
  2. DILTIAZEM HCL [Suspect]
     Indication: PRINZMETAL ANGINA
     Dosage: 100 MG QD, ORAL (200 MG 1X ORAL)
     Route: 048
     Dates: start: 20091111, end: 20091111
  3. MAINTATE MAINTATE-BISOPROLOL FURARATE (NOT SPECIFIED) [Suspect]
     Indication: BLOOD PRESSURE INCREASED
     Dosage: 5 MG QD ORAL, 10 MG QD ORAL
     Route: 048
     Dates: start: 20090903, end: 20091110
  4. MAINTATE MAINTATE-BISOPROLOL FURARATE (NOT SPECIFIED) [Suspect]
     Indication: BLOOD PRESSURE INCREASED
     Dosage: 5 MG QD ORAL, 10 MG QD ORAL
     Route: 048
     Dates: start: 20091111, end: 20091111
  5. ADALAT CC [Suspect]
     Indication: BLOOD PRESSURE INCREASED
     Dosage: 40 MG QD ORAL, 60 MG QD ORAL, 80 MG QD ORAL
     Route: 048
     Dates: start: 20090903, end: 20090914
  6. ADALAT CC [Suspect]
     Indication: BLOOD PRESSURE INCREASED
     Dosage: 40 MG QD ORAL, 60 MG QD ORAL, 80 MG QD ORAL
     Route: 048
     Dates: start: 20090915, end: 20091110
  7. ADALAT CC [Suspect]
     Indication: BLOOD PRESSURE INCREASED
     Dosage: 40 MG QD ORAL, 60 MG QD ORAL, 80 MG QD ORAL
     Route: 048
     Dates: start: 20091111, end: 20091111
  8. OLMETEC (OLMETEC-OLMESARTAN MEDOXOMIL) (NOT SPECIFIED) [Suspect]
     Indication: BLOOD PRESSURE INCREASED
     Dosage: 20 MG QD ORAL, 40 MG QD ORAL, 80 MG QD ORAL
     Route: 048
     Dates: start: 20090903, end: 20090914
  9. OLMETEC (OLMETEC-OLMESARTAN MEDOXOMIL) (NOT SPECIFIED) [Suspect]
     Indication: BLOOD PRESSURE INCREASED
     Dosage: 20 MG QD ORAL, 40 MG QD ORAL, 80 MG QD ORAL
     Route: 048
     Dates: start: 20090915, end: 20091110
  10. OLMETEC (OLMETEC-OLMESARTAN MEDOXOMIL) (NOT SPECIFIED) [Suspect]
     Indication: BLOOD PRESSURE INCREASED
     Dosage: 20 MG QD ORAL, 40 MG QD ORAL, 80 MG QD ORAL
     Route: 048
     Dates: start: 20091111, end: 20091111
  11. FLUITRAN (FLUITRAN-TRICHLORMETIAZIDE) (NOT SPECIFIED) [Suspect]
     Indication: BLOOD PRESSURE INCREASED
     Dosage: 2 MG QD ORAL, 4 MG QD ORAL
     Route: 048
     Dates: start: 20090915, end: 20091110
  12. FLUITRAN (FLUITRAN-TRICHLORMETIAZIDE) (NOT SPECIFIED) [Suspect]
     Indication: BLOOD PRESSURE INCREASED
     Dosage: 2 MG QD ORAL, 4 MG QD ORAL
     Route: 048
     Dates: start: 20091111, end: 20091111
  13. HALCION [Concomitant]

REACTIONS (7)
  - BLOOD PRESSURE DECREASED [None]
  - BRADYCARDIA [None]
  - CARDIO-RESPIRATORY ARREST [None]
  - COLD SWEAT [None]
  - DEPRESSED LEVEL OF CONSCIOUSNESS [None]
  - INCORRECT DOSE ADMINISTERED [None]
  - RESPIRATORY RATE INCREASED [None]
